FAERS Safety Report 4721963-0 (Version None)
Quarter: 2005Q3

REPORT INFORMATION
  Report Type: 
  Country: None (occurrence: None)
  Receive Date: 20050720
  Receipt Date: 20050707
  Transmission Date: 20060218
  Serious: Yes (Death)
  Sender: FDA-Public Use
  Company Number: GBWYE807607JUL05

PATIENT

DRUGS (3)
  1. GEMTUZUMAB OZOGAMICIN (GEMTUZUMAB OZOGAMICIN, INJECTION) [Suspect]
  2. CYTARABINE [Concomitant]
  3. DAUNORUBICIN HCL [Concomitant]

REACTIONS (1)
  - PNEUMONIA FUNGAL [None]
